FAERS Safety Report 16694308 (Version 1)
Quarter: 2019Q3

REPORT INFORMATION
  Report Type: Spontaneous
  Country: CN (occurrence: CN)
  Receive Date: 20190812
  Receipt Date: 20190812
  Transmission Date: 20191004
  Serious: Yes (Other)
  Sender: FDA-Public Use
  Company Number: CN-ELI_LILLY_AND_COMPANY-CN201908003984

PATIENT
  Age: 58 Year
  Sex: Male
  Weight: 53 kg

DRUGS (4)
  1. SODIUM CHLORIDE. [Concomitant]
     Active Substance: SODIUM CHLORIDE
     Dosage: 360 ML, UNKNOWN
     Route: 041
     Dates: start: 20190724
  2. SODIUM CHLORIDE. [Concomitant]
     Active Substance: SODIUM CHLORIDE
     Indication: MEDICATION DILUTION
     Dosage: 100 ML, UNKNOWN
     Route: 041
     Dates: start: 20190724
  3. ERBITUX [Suspect]
     Active Substance: CETUXIMAB
     Indication: PRODUCT USED FOR UNKNOWN INDICATION
     Dosage: 100 MG, UNKNOWN
     Route: 041
     Dates: start: 20190724
  4. ERBITUX [Suspect]
     Active Substance: CETUXIMAB
     Dosage: 700 MG, UNKNOWN
     Route: 041
     Dates: start: 20190724, end: 20190724

REACTIONS (3)
  - Hyperpyrexia [Recovering/Resolving]
  - Temperature intolerance [Recovering/Resolving]
  - Chills [Recovering/Resolving]

NARRATIVE: CASE EVENT DATE: 20190724
